FAERS Safety Report 7078415-5 (Version None)
Quarter: 2010Q4

REPORT INFORMATION
  Report Type: 
  Country: None (occurrence: None)
  Receive Date: 20101102
  Receipt Date: 20101022
  Transmission Date: 20110411
  Serious: Yes (Hospitalization)
  Sender: FDA-Public Use
  Company Number: CA-JNJFOC-20101007211

PATIENT
  Sex: Female
  Weight: 62.4 kg

DRUGS (2)
  1. REMICADE [Suspect]
     Indication: CROHN'S DISEASE
     Dosage: HAS HAD 27 INFUSIONS AT THE TIME OF THE REPORT
     Route: 042
  2. IMURAN [Concomitant]

REACTIONS (1)
  - RECTAL HAEMORRHAGE [None]
